FAERS Safety Report 8872804 (Version 4)
Quarter: 2013Q3

REPORT INFORMATION
  Report Type: Spontaneous
  Country: US (occurrence: US)
  Receive Date: 20121029
  Receipt Date: 20130806
  Transmission Date: 20140515
  Serious: No
  Sender: FDA-Public Use
  Company Number: US-PFIZER INC-2012266473

PATIENT
  Sex: Female

DRUGS (1)
  1. LYRICA [Suspect]
     Dosage: 25 MG, UNK

REACTIONS (5)
  - Intentional drug misuse [Unknown]
  - Dizziness [Unknown]
  - Feeling abnormal [Unknown]
  - Euphoric mood [Unknown]
  - Drug withdrawal syndrome [Unknown]
